FAERS Safety Report 4761558-6 (Version None)
Quarter: 2005Q3

REPORT INFORMATION
  Report Type: 
  Country: None (occurrence: None)
  Receive Date: 20050906
  Receipt Date: 20050829
  Transmission Date: 20060218
  Serious: Yes (Other)
  Sender: FDA-Public Use
  Company Number: PHBS2005VE12567

PATIENT
  Age: 59 Year
  Sex: Female

DRUGS (9)
  1. ZELMAC [Suspect]
     Indication: IRRITABLE BOWEL SYNDROME
     Dosage: 6 MG, BID
     Route: 048
     Dates: start: 20050811
  2. LANSOPRAZOLE [Concomitant]
  3. VASTAREL [Concomitant]
  4. ADAKAI [Concomitant]
  5. CONCOR [Concomitant]
  6. NORVASC [Concomitant]
  7. DOMPERIDONE [Concomitant]
  8. FLEGYL [Concomitant]
     Dosage: 500 MG, UNK
     Dates: start: 20050811
  9. LACTULOSE [Concomitant]
     Indication: CONSTIPATION

REACTIONS (3)
  - CONSTIPATION [None]
  - DIARRHOEA [None]
  - HAEMATOCHEZIA [None]
